FAERS Safety Report 20341413 (Version 1)
Quarter: 2022Q1

REPORT INFORMATION
  Report Type: Spontaneous
  Country: NL (occurrence: NL)
  Receive Date: 20220117
  Receipt Date: 20220117
  Transmission Date: 20220423
  Serious: Yes (Other)
  Sender: FDA-Public Use
  Company Number: None

PATIENT
  Age: 23 Year
  Sex: Male
  Weight: 71 kg

DRUGS (4)
  1. METOCLOPRAMIDE [Suspect]
     Active Substance: METOCLOPRAMIDE
     Indication: Affective disorder
     Dosage: 3 X A DAY 1 PIECE
     Route: 065
     Dates: start: 20220102, end: 20220103
  2. METOCLOPRAMIDE [Suspect]
     Active Substance: METOCLOPRAMIDE
     Indication: Somatic symptom disorder
  3. RISPERDAL [Suspect]
     Active Substance: RISPERIDONE
     Indication: Somatic symptom disorder
     Dosage: 2 X A DAY 1 PIECE
     Route: 065
     Dates: start: 20220102, end: 20220103
  4. RISPERDAL [Suspect]
     Active Substance: RISPERIDONE
     Indication: Affective disorder

REACTIONS (4)
  - Dystonia [Recovered/Resolved]
  - Dyskinesia [Recovered/Resolved]
  - Akathisia [Recovered/Resolved]
  - Extrapyramidal disorder [Recovered/Resolved]

NARRATIVE: CASE EVENT DATE: 20220103
